FAERS Safety Report 6576533-9 (Version None)
Quarter: 2010Q1

REPORT INFORMATION
  Report Type: 
  Country: None (occurrence: None)
  Receive Date: 20100210
  Receipt Date: 20100202
  Transmission Date: 20100710
  Serious: Yes (Other)
  Sender: FDA-Public Use
  Company Number: IE-ASTRAZENECA-2009SE24141

PATIENT
  Sex: Female

DRUGS (3)
  1. SYMBICORT [Suspect]
     Indication: ASTHMA
     Dosage: 200/6 UG
     Route: 055
  2. VENTILIN [Concomitant]
  3. BECATIDE [Concomitant]

REACTIONS (3)
  - AMYLOIDOSIS [None]
  - CARDIOMYOPATHY [None]
  - OEDEMA PERIPHERAL [None]
